FAERS Safety Report 10983003 (Version 1)
Quarter: 2015Q1

REPORT INFORMATION
  Report Type: Spontaneous
  Country: US (occurrence: None)
  Receive Date: 20150302
  Receipt Date: 20150302
  Transmission Date: 20150721
  Serious: Yes (Other)
  Sender: FDA-Public Use
  Company Number: M2014-031

PATIENT
  Age: 77 Year
  Sex: Male

DRUGS (10)
  1. MUCOR RACEMOSUS. [Suspect]
     Active Substance: MUCOR RACEMOSUS
     Indication: ALLERGY TEST
     Dosage: 0.50CC/INJECTION?
     Dates: start: 20140801
  2. ALLERGENIC EXTRACT- CANDIDA. [Suspect]
     Active Substance: ALLERGENIC EXTRACT- CANDIDA
     Indication: ALLERGY TEST
     Dosage: 0.50CC/INJECTION?
     Dates: start: 20140801
  3. HELMINTHOSPORIUM INTERSEMINATUM [Suspect]
     Active Substance: DENDRYPHIELLA VINOSA
     Indication: ALLERGY TEST
     Dosage: 0.50CC/INJECTION?
     Dates: start: 20140801
  4. ASPERGILLUS FUMIGATUS. [Suspect]
     Active Substance: ASPERGILLUS FUMIGATUS
     Indication: ALLERGY TEST
     Dosage: 0.50CC/INJECTION?
     Dates: start: 20140801
  5. HORMODENDRUM CLADOSPORIOIDES [Suspect]
     Active Substance: CLADOSPORIUM CLADOSPORIOIDES
     Indication: ALLERGY TEST
     Dosage: 0.50CC/INJECTION?
     Dates: start: 20140801
  6. ASPERGILLUS NIGER VAR NIGER [Suspect]
     Active Substance: ASPERGILLUS NIGER VAR. NIGER
     Indication: ALLERGY TEST
     Dosage: 0.50CC/INJECTION?
     Dates: start: 20140801
  7. PULLULARIA PULLULANS [Suspect]
     Active Substance: AUREOBASIDIUM PULLULANS VAR. PULLUTANS
     Indication: ALLERGY TEST
     Dosage: 0.50CC/INJECTION?
     Dates: start: 20140801
  8. RHIZOPUS NIGRICANS [Suspect]
     Active Substance: RHIZOPUS STOLONIFER
     Indication: ALLERGY TEST
     Dosage: 0.50CC/INJECTION?
     Dates: start: 20140801
  9. ALLERGENIC EXTRACT- ALTERNARIA. [Suspect]
     Active Substance: ALLERGENIC EXTRACT- ALTERNARIA
     Indication: ALLERGY TEST
     Dosage: 0.50CC/INJECTION?
     Dates: start: 20140801
  10. FUSARIUM VASINFECTUM OXYSPORUM [Suspect]
     Active Substance: FUSARIUM OXYSPORUM VASINFECTUM
     Indication: ALLERGY TEST
     Dosage: 0.50CC/INJECTION?
     Dates: start: 20140801

REACTIONS (2)
  - Pruritus [None]
  - Swelling [None]

NARRATIVE: CASE EVENT DATE: 20140801
